FAERS Safety Report 24119147 (Version 1)
Quarter: 2024Q3

REPORT INFORMATION
  Report Type: Spontaneous
  Country: US (occurrence: US)
  Receive Date: 20240722
  Receipt Date: 20240722
  Transmission Date: 20241017
  Serious: Yes (Death)
  Sender: VERO BIOTECH
  Company Number: US-VEROBIOTECH-2024USVEROSPO00147

PATIENT
  Age: 49 Year
  Sex: Male

DRUGS (1)
  1. GENOSYL [Suspect]
     Active Substance: NITRIC OXIDE
     Indication: Product used for unknown indication
     Dosage: 40 PPM

REACTIONS (2)
  - Death [Fatal]
  - Device issue [Unknown]
